FAERS Safety Report 6355487-4 (Version None)
Quarter: 2009Q3

REPORT INFORMATION
  Report Type: 
  Country: None (occurrence: None)
  Receive Date: 20090914
  Receipt Date: 20090831
  Transmission Date: 20100115
  Serious: Yes (Hospitalization)
  Sender: FDA-Public Use
  Company Number: FR-ROCHE-622843

PATIENT
  Sex: Male
  Weight: 76 kg

DRUGS (5)
  1. PEG-INTERFERON ALFA 2A (RO 25-8310) [Suspect]
     Route: 058
     Dates: start: 20081202, end: 20090119
  2. PEG-INTERFERON ALFA 2A (RO 25-8310) [Suspect]
     Route: 058
     Dates: start: 20090120, end: 20090120
  3. PEG-INTERFERON ALFA 2A (RO 25-8310) [Suspect]
     Dosage: TEMPORARILY STOPPED
     Route: 058
     Dates: start: 20090127, end: 20090224
  4. RIBAVIRIN [Suspect]
     Dosage: TEMPORARILY STOPPED
     Route: 048
     Dates: start: 20081202, end: 20090228
  5. BLINDED TELAPREVIR [Suspect]
     Dosage: PERMANENTLY STOPPED.
     Route: 048
     Dates: start: 20081202, end: 20090228

REACTIONS (4)
  - HISTIOCYTOSIS HAEMATOPHAGIC [None]
  - RASH [None]
  - SEPSIS [None]
  - TOXIC SKIN ERUPTION [None]
